FAERS Safety Report 5650513-X (Version None)
Quarter: 2008Q1

REPORT INFORMATION
  Report Type: 
  Country: None (occurrence: None)
  Receive Date: 20080305
  Receipt Date: 20080228
  Transmission Date: 20080703
  Serious: Yes (Other)
  Sender: FDA-Public Use
  Company Number: PHFR2008GB00997

PATIENT
  Sex: Male

DRUGS (1)
  1. TEGRETOL [Suspect]
     Dosage: UNK, UNK
     Route: 064
     Dates: start: 19980825, end: 19990222

REACTIONS (1)
  - FOETAL ANTICONVULSANT SYNDROME [None]
